FAERS Safety Report 5804572-1 (Version None)
Quarter: 2008Q3

REPORT INFORMATION
  Report Type: 
  Country: None (occurrence: None)
  Receive Date: 20080707
  Receipt Date: 20080707
  Transmission Date: 20090109
  Serious: Yes (Hospitalization)
  Sender: FDA-Public Use
  Company Number: None

PATIENT
  Age: 70 Year
  Sex: Male

DRUGS (1)
  1. MORPHINE [Suspect]
     Dosage: 15 MG BID PO
     Route: 048
     Dates: start: 20080325, end: 20080330

REACTIONS (2)
  - CONFUSIONAL STATE [None]
  - SEDATION [None]
